FAERS Safety Report 5883996-0 (Version None)
Quarter: 2008Q3

REPORT INFORMATION
  Report Type: 
  Country: None (occurrence: None)
  Receive Date: 20080915
  Receipt Date: 20080903
  Transmission Date: 20090109
  Serious: Yes (Hospitalization, Other)
  Sender: FDA-Public Use
  Company Number: JP-ROCHE-585029

PATIENT
  Age: 55 Year
  Sex: Female

DRUGS (5)
  1. XELODA [Suspect]
     Indication: BREAST CANCER
     Route: 065
  2. OPIOID ANALGESIC NOS [Concomitant]
     Indication: CANCER PAIN
  3. NON-STEROIDAL ANTI-INFLAMMATORIES [Concomitant]
     Indication: CANCER PAIN
  4. NARCOTICS [Concomitant]
     Route: 058
  5. DUROTEP [Concomitant]
     Indication: CANCER PAIN
     Route: 061

REACTIONS (2)
  - DELIRIUM [None]
  - DIARRHOEA [None]
